FAERS Safety Report 12718298 (Version 1)
Quarter: 2016Q3

REPORT INFORMATION
  Report Type: Spontaneous
  Country: DE (occurrence: DE)
  Receive Date: 20160906
  Receipt Date: 20160906
  Transmission Date: 20161109
  Serious: Yes (Other)
  Sender: FDA-Public Use
  Company Number: DE-TEVA-688139GER

PATIENT
  Sex: Male
  Weight: 98 kg

DRUGS (2)
  1. ATORVASTATIN RATIOPHARM 40MG [Suspect]
     Active Substance: ATORVASTATIN
     Indication: HYPERLIPIDAEMIA
     Route: 048
     Dates: start: 20160517, end: 20160621
  2. SORTIS 40 MG [Suspect]
     Active Substance: ATORVASTATIN
     Route: 048

REACTIONS (5)
  - Decreased appetite [Recovering/Resolving]
  - Fatigue [Recovering/Resolving]
  - Nausea [Recovering/Resolving]
  - Gamma-glutamyltransferase increased [Not Recovered/Not Resolved]
  - Blood triglycerides increased [Not Recovered/Not Resolved]

NARRATIVE: CASE EVENT DATE: 20160531
